FAERS Safety Report 5005535-9 (Version None)
Quarter: 2006Q2

REPORT INFORMATION
  Report Type: 
  Country: None (occurrence: None)
  Receive Date: 20060518
  Receipt Date: 20060322
  Transmission Date: 20061013
  Serious: Yes (Death, Hospitalization)
  Sender: FDA-Public Use
  Company Number: IT-ROCHE-441198

PATIENT
  Age: 65 Year
  Sex: Male

DRUGS (17)
  1. MYCOPHENOLATE MOFETIL [Suspect]
     Route: 042
     Dates: start: 20060117
  2. MYCOPHENOLATE MOFETIL [Suspect]
     Route: 042
     Dates: end: 20060206
  3. FK506 [Suspect]
     Route: 048
     Dates: start: 20060117, end: 20060117
  4. FK506 [Suspect]
     Route: 048
     Dates: start: 20060118, end: 20060119
  5. FK506 [Suspect]
     Route: 048
     Dates: start: 20060120, end: 20060121
  6. FK506 [Suspect]
     Route: 048
     Dates: start: 20060122, end: 20060124
  7. FK506 [Suspect]
     Route: 048
     Dates: start: 20060125, end: 20060128
  8. FK506 [Suspect]
     Route: 048
     Dates: start: 20060131, end: 20060131
  9. FK506 [Suspect]
     Route: 048
     Dates: start: 20060205, end: 20060205
  10. FK506 [Suspect]
     Route: 048
     Dates: start: 20060206
  11. FUROSEMIDE [Concomitant]
  12. OMEPRAZOLE [Concomitant]
  13. PIPERACILLIN AND TAZOBACTAM [Concomitant]
  14. TAZOBACTAM [Concomitant]
  15. ALBUMIN (HUMAN) [Concomitant]
  16. BACTRIM DS [Concomitant]
  17. INSULIN [Concomitant]

REACTIONS (5)
  - CARDIAC ARREST [None]
  - COMA [None]
  - DRUG TOXICITY [None]
  - NERVOUS SYSTEM DISORDER [None]
  - PORTAL VEIN THROMBOSIS [None]
